FAERS Safety Report 23584801 (Version 1)
Quarter: 2024Q1

REPORT INFORMATION
  Report Type: Spontaneous
  Country: AU (occurrence: AU)
  Receive Date: 20240301
  Receipt Date: 20240301
  Transmission Date: 20240410
  Serious: Yes (Death, Hospitalization, Other)
  Sender: FDA-Public Use
  Company Number: AU-SA-SAC20240229000599

PATIENT
  Age: 38 Year
  Sex: Female

DRUGS (2)
  1. OXALIPLATIN [Suspect]
     Active Substance: OXALIPLATIN
     Indication: Colorectal cancer
     Dosage: UNK UNK, Q3W
     Route: 065
     Dates: start: 20180807
  2. CAPECITABINE [Suspect]
     Active Substance: CAPECITABINE
     Indication: Colorectal cancer
     Dosage: UNK, Q3W
     Route: 048
     Dates: start: 20180807

REACTIONS (2)
  - Diarrhoea [Recovered/Resolved]
  - Colorectal cancer [Fatal]

NARRATIVE: CASE EVENT DATE: 20180807
